FAERS Safety Report 7236350-3 (Version None)
Quarter: 2011Q1

REPORT INFORMATION
  Report Type: 
  Country: None (occurrence: None)
  Receive Date: 20110120
  Receipt Date: 20110108
  Transmission Date: 20110831
  Serious: Yes (Other)
  Sender: FDA-Public Use
  Company Number: PHHY2011IT01799

PATIENT
  Age: 45 Year
  Sex: Female

DRUGS (5)
  1. LAMOTRIGINE [Suspect]
     Dosage: 50 MG, UNK
  2. LAMOTRIGINE [Interacting]
     Dosage: 100 MG, BID
     Dates: start: 20090608
  3. PHENOBARBITAL [Interacting]
     Dosage: 100 MG, UNK
  4. LAMOTRIGINE [Interacting]
     Dosage: 200 MG, UNK
  5. PHENOBARBITAL [Interacting]
     Dosage: 100 MG, UNK

REACTIONS (3)
  - LEUKOPENIA [None]
  - THROMBOCYTOPENIA [None]
  - DRUG INTERACTION [None]
